FAERS Safety Report 13745500 (Version 1)
Quarter: 2017Q3

REPORT INFORMATION
  Report Type: Spontaneous
  Country: US (occurrence: US)
  Receive Date: 20170711
  Receipt Date: 20170711
  Transmission Date: 20171127
  Serious: No
  Sender: FDA-Public Use
  Company Number: None

PATIENT
  Age: 49 Year
  Sex: Female

DRUGS (12)
  1. VERAPAMIL [Concomitant]
     Active Substance: VERAPAMIL HYDROCHLORIDE
  2. DEXTROAMPHETAMINE. [Concomitant]
     Active Substance: DEXTROAMPHETAMINE
  3. NORCO [Concomitant]
     Active Substance: ACETAMINOPHEN\HYDROCODONE BITARTRATE
  4. BACLOFEN. [Concomitant]
     Active Substance: BACLOFEN
  5. VITAMIN D3 [Concomitant]
     Active Substance: CHOLECALCIFEROL
  6. CITRACAL [Concomitant]
     Active Substance: CALCIUM CITRATE
  7. AMPYRA [Suspect]
     Active Substance: DALFAMPRIDINE
     Indication: MULTIPLE SCLEROSIS
     Route: 048
     Dates: start: 201006
  8. NICORETTE [Concomitant]
     Active Substance: NICOTINE
  9. RITUXAN [Concomitant]
     Active Substance: RITUXIMAB
  10. METHENAMINE [Concomitant]
     Active Substance: METHENAMINE
  11. FLUOXETINE [Concomitant]
     Active Substance: FLUOXETINE HYDROCHLORIDE
  12. NORA BE [Concomitant]
     Active Substance: NORETHINDRONE

REACTIONS (14)
  - White blood cells urine positive [None]
  - Blood immunoglobulin G decreased [None]
  - Lymphocyte count increased [None]
  - Alanine aminotransferase increased [None]
  - Nitrite urine present [None]
  - Urine leukocyte esterase positive [None]
  - Escherichia urinary tract infection [None]
  - Blood immunoglobulin M decreased [None]
  - B-lymphocyte count decreased [None]
  - Laboratory test abnormal [None]
  - Haemoglobin urine present [None]
  - Urine analysis abnormal [None]
  - Staphylococcal infection [None]
  - Culture urine positive [None]

NARRATIVE: CASE EVENT DATE: 20170606
